FAERS Safety Report 8990626 (Version 1)
Quarter: 2012Q4

REPORT INFORMATION
  Report Type: 
  Country: IR (occurrence: IR)
  Receive Date: 20121228
  Receipt Date: 20121228
  Transmission Date: 20130627
  Serious: Yes (Death)
  Sender: FDA-Public Use
  Company Number: IR-ROCHE-1174938

PATIENT
  Age: 28 Year
  Sex: Female

DRUGS (1)
  1. MABTHERA [Suspect]
     Indication: SYSTEMIC LUPUS ERYTHEMATOSUS
     Route: 041
     Dates: start: 20111001, end: 20111101

REACTIONS (2)
  - Pancytopenia [Fatal]
  - Pyrexia [Fatal]
